FAERS Safety Report 6391169-0 (Version None)
Quarter: 2009Q4

REPORT INFORMATION
  Report Type: 
  Country: None (occurrence: None)
  Receive Date: 20091006
  Receipt Date: 20091006
  Transmission Date: 20100525
  Serious: Yes (Other)
  Sender: FDA-Public Use
  Company Number: None

PATIENT
  Age: 5 Year
  Sex: Male
  Weight: 26.3086 kg

DRUGS (1)
  1. SINGULAIR [Suspect]
     Indication: MULTIPLE ALLERGIES
     Dosage: 4 MG   1 TIME PER DAY PO
     Route: 048
     Dates: start: 20090801, end: 20090825

REACTIONS (5)
  - AFFECT LABILITY [None]
  - AGGRESSION [None]
  - ANGER [None]
  - FEELING ABNORMAL [None]
  - MOOD SWINGS [None]
